FAERS Safety Report 5159566-9 (Version None)
Quarter: 2006Q4

REPORT INFORMATION
  Report Type: 
  Country: None (occurrence: None)
  Receive Date: 20061117
  Receipt Date: 20061103
  Transmission Date: 20070319
  Serious: Yes (Hospitalization, Disabling, Other)
  Sender: FDA-Public Use
  Company Number: 2006RR-04416

PATIENT
  Age: 29 Year
  Sex: Female

DRUGS (3)
  1. LAMIVUDINE [Suspect]
     Dates: start: 20030901
  2. ZIDOVUDINE [Suspect]
     Dates: start: 20030901
  3. NEVIRAPINE [Suspect]
     Dates: start: 20030901

REACTIONS (11)
  - CONDITION AGGRAVATED [None]
  - DERMATITIS BULLOUS [None]
  - DYSPNOEA EXERTIONAL [None]
  - HAEMOPTYSIS [None]
  - IMMUNE RECONSTITUTION SYNDROME [None]
  - KAPOSI'S SARCOMA [None]
  - LOCALISED INFECTION [None]
  - LUNG DISORDER [None]
  - LYMPHOEDEMA [None]
  - MOBILITY DECREASED [None]
  - SKIN ULCER [None]
